FAERS Safety Report 11692475 (Version 1)
Quarter: 2015Q4

REPORT INFORMATION
  Report Type: Spontaneous
  Country: US (occurrence: US)
  Receive Date: 20151103
  Receipt Date: 20151103
  Transmission Date: 20160304
  Serious: No
  Sender: FDA-Public Use
  Company Number: US-PFIZER INC-2015337452

PATIENT
  Age: 72 Year
  Sex: Female

DRUGS (10)
  1. MILK THISTLE [Concomitant]
     Active Substance: MILK THISTLE
     Dosage: UNK
  2. CLARITIN [Concomitant]
     Active Substance: LORATADINE
     Dosage: UNK
  3. LATISSE [Concomitant]
     Active Substance: BIMATOPROST
     Dosage: UNK
  4. POMEGRANATE [Concomitant]
     Active Substance: POMEGRANATE
     Dosage: UNK
  5. CYCLOBENZAPRINE HCL [Concomitant]
     Active Substance: CYCLOBENZAPRINE HYDROCHLORIDE
     Dosage: UNK
  6. IBRANCE [Suspect]
     Active Substance: PALBOCICLIB
     Dosage: UNK
     Dates: start: 20150924
  7. CIPRO [Concomitant]
     Active Substance: CIPROFLOXACIN HYDROCHLORIDE
     Dosage: UNK
  8. COQ 10 [Concomitant]
     Active Substance: UBIDECARENONE
     Dosage: UNK
  9. FEMARA [Concomitant]
     Active Substance: LETROZOLE
     Dosage: UNK
  10. LEXAPRO [Concomitant]
     Active Substance: ESCITALOPRAM OXALATE
     Dosage: UNK

REACTIONS (3)
  - Stomatitis [Unknown]
  - Nausea [Unknown]
  - Fatigue [Unknown]
